FAERS Safety Report 6415573-7 (Version None)
Quarter: 2009Q4

REPORT INFORMATION
  Report Type: 
  Country: None (occurrence: None)
  Receive Date: 20091027
  Receipt Date: 20091019
  Transmission Date: 20100525
  Serious: Yes (Other)
  Sender: FDA-Public Use
  Company Number: US-ROCHE-657777

PATIENT
  Sex: Female
  Weight: 74.4 kg

DRUGS (5)
  1. BONIVA [Suspect]
     Indication: OSTEOPOROSIS
     Route: 048
     Dates: start: 20090826
  2. COUMADIN [Suspect]
     Route: 048
     Dates: start: 20080301, end: 20090915
  3. COUMADIN [Suspect]
     Route: 048
     Dates: start: 20090921
  4. ATENOLOL [Concomitant]
     Dosage: DOSE: 50
     Route: 048
     Dates: start: 20080301
  5. FEMARA [Concomitant]
     Indication: BREAST CANCER
     Dosage: DOSE:2.5
     Route: 048

REACTIONS (2)
  - DYSPHONIA [None]
  - INTERNATIONAL NORMALISED RATIO INCREASED [None]
